FAERS Safety Report 6110683-6 (Version None)
Quarter: 2009Q1

REPORT INFORMATION
  Report Type: 
  Country: None (occurrence: None)
  Receive Date: 20090310
  Receipt Date: 20090302
  Transmission Date: 20090719
  Serious: Yes (Other)
  Sender: FDA-Public Use
  Company Number: DE-AMGEN-UK331587

PATIENT

DRUGS (7)
  1. NEULASTA [Suspect]
     Indication: CHEMOTHERAPY
     Route: 058
     Dates: start: 20081220, end: 20090103
  2. MCP-RATIOPHARM [Concomitant]
     Route: 065
  3. GEMCITABINE HCL [Concomitant]
     Route: 065
     Dates: start: 20090119
  4. DOXORUBICIN HYDROCHLORIDE [Concomitant]
     Route: 065
     Dates: start: 20090119
  5. VINBLASTINE [Concomitant]
     Route: 065
     Dates: start: 20090119
  6. DECORTIN [Concomitant]
     Route: 065
     Dates: start: 20081219, end: 20090104
  7. GRANISETRON [Concomitant]
     Route: 065
     Dates: start: 20081219, end: 20090102

REACTIONS (1)
  - DYSPNOEA [None]
